FAERS Safety Report 13458234 (Version 1)
Quarter: 2017Q2

REPORT INFORMATION
  Report Type: Spontaneous
  Country: IT (occurrence: IT)
  Receive Date: 20170419
  Receipt Date: 20170419
  Transmission Date: 20170830
  Serious: Yes (Hospitalization, Other)
  Sender: FDA-Public Use
  Company Number: IT-BAYER-2017-069637

PATIENT
  Age: 40 Year
  Sex: Female

DRUGS (1)
  1. ACETYLSALICYLIC ACID({=100 MG) [Suspect]
     Active Substance: ASPIRIN
     Indication: SYSTEMIC LUPUS ERYTHEMATOSUS
     Dosage: 100 MG, QD
     Route: 048

REACTIONS (5)
  - Platelet count decreased [Recovered/Resolved]
  - Exposure during pregnancy [None]
  - Caesarean section [Recovered/Resolved]
  - Off label use [None]
  - Premature delivery [Recovered/Resolved]
